FAERS Safety Report 21513661 (Version 1)
Quarter: 2022Q4

REPORT INFORMATION
  Report Type: Spontaneous
  Country: PT (occurrence: PT)
  Receive Date: 20221027
  Receipt Date: 20221027
  Transmission Date: 20230112
  Serious: Yes (Other)
  Sender: FDA-Public Use
  Company Number: PT-009507513-2210PRT008771

PATIENT
  Age: 61 Year
  Sex: Male

DRUGS (1)
  1. IMIPENEM AND CILASTATIN [Suspect]
     Active Substance: CILASTATIN SODIUM\IMIPENEM
     Indication: Nocardiosis
     Dosage: UNK

REACTIONS (2)
  - Nephropathy toxic [Recovering/Resolving]
  - Product use in unapproved indication [Unknown]
